FAERS Safety Report 25785726 (Version 1)
Quarter: 2025Q3

REPORT INFORMATION
  Report Type: Spontaneous
  Country: GB (occurrence: GB)
  Receive Date: 20250910
  Receipt Date: 20250910
  Transmission Date: 20251021
  Serious: Yes (Other)
  Sender: AUROBINDO
  Company Number: GB-MHRA-MED-202508271145318040-LMPNH

PATIENT
  Age: 42 Year
  Sex: Female
  Weight: 65 kg

DRUGS (1)
  1. DULOXETINE [Suspect]
     Active Substance: DULOXETINE
     Indication: Adverse drug reaction
     Dosage: 30 MILLIGRAM, ONCE A DAY (30MG ONCE A DAY)
     Route: 065
     Dates: start: 20241030

REACTIONS (1)
  - Menstruation delayed [Recovering/Resolving]

NARRATIVE: CASE EVENT DATE: 20250320
